FAERS Safety Report 11399835 (Version 1)
Quarter: 2015Q3

REPORT INFORMATION
  Report Type: Spontaneous
  Country: US (occurrence: US)
  Receive Date: 20150820
  Receipt Date: 20150820
  Transmission Date: 20151125
  Serious: Yes (Death, Other)
  Sender: FDA-Public Use
  Company Number: US-GLAXOSMITHKLINE-US2015118687

PATIENT
  Age: 60 Year
  Sex: Female

DRUGS (12)
  1. BENLYSTA [Suspect]
     Active Substance: BELIMUMAB
     Indication: PRODUCT USED FOR UNKNOWN INDICATION
     Dosage: UNK
     Dates: start: 20150504
  2. HYDROXYCHLOROQUINE [Concomitant]
     Active Substance: HYDROXYCHLOROQUINE
  3. IMITREX [Concomitant]
     Active Substance: SUMATRIPTAN\SUMATRIPTAN SUCCINATE
  4. OXYCODONE [Concomitant]
     Active Substance: OXYCODONE
  5. SEROQUEL [Concomitant]
     Active Substance: QUETIAPINE FUMARATE
  6. MAXALT [Concomitant]
     Active Substance: RIZATRIPTAN BENZOATE
  7. GABAPENTIN. [Concomitant]
     Active Substance: GABAPENTIN
  8. ASPIRIN. [Concomitant]
     Active Substance: ASPIRIN
  9. AMPHETAMINE [Concomitant]
     Active Substance: AMPHETAMINE
  10. NIFEDIPINE. [Concomitant]
     Active Substance: NIFEDIPINE
  11. MORPHINE [Concomitant]
     Active Substance: MORPHINE
  12. FOLIC ACID. [Concomitant]
     Active Substance: FOLIC ACID

REACTIONS (5)
  - Gastrointestinal haemorrhage [Fatal]
  - Rash [Unknown]
  - Myalgia [Unknown]
  - Arthralgia [Unknown]
  - Fatigue [Unknown]

NARRATIVE: CASE EVENT DATE: 20150622
